FAERS Safety Report 19658465 (Version 2)
Quarter: 2021Q3

REPORT INFORMATION
  Report Type: Report from Study
  Country: US (occurrence: US)
  Receive Date: 20210805
  Receipt Date: 20210821
  Transmission Date: 20211014
  Serious: Yes (Other)
  Sender: FDA-Public Use
  Company Number: US-AUROBINDO-AUR-APL-2021-033849

PATIENT
  Age: 45 Year
  Sex: Female
  Weight: 81.7 kg

DRUGS (1)
  1. BELINOSTAT [Suspect]
     Active Substance: BELINOSTAT
     Indication: ACUTE MYELOID LEUKAEMIA
     Dosage: UNK
     Route: 065
     Dates: start: 20200211

REACTIONS (24)
  - Anxiety [Unknown]
  - Flushing [Unknown]
  - Rash maculo-papular [Unknown]
  - Hypophosphataemia [Unknown]
  - Fatigue [Unknown]
  - Hypotension [Unknown]
  - Nausea [Unknown]
  - Aspartate aminotransferase increased [Unknown]
  - Alanine aminotransferase increased [Unknown]
  - Platelet count decreased [Unknown]
  - Hyponatraemia [Unknown]
  - Constipation [Unknown]
  - Pneumonia [Unknown]
  - Pruritus [Unknown]
  - Proteinuria [Unknown]
  - Hypoalbuminaemia [Unknown]
  - Dyspepsia [Unknown]
  - Decreased appetite [Unknown]
  - Electrocardiogram QT prolonged [Unknown]
  - Peripheral sensory neuropathy [Unknown]
  - Periorbital oedema [Unknown]
  - Chills [Unknown]
  - Hypocalcaemia [Unknown]
  - Vomiting [Unknown]
